FAERS Safety Report 4916362-2 (Version None)
Quarter: 2006Q1

REPORT INFORMATION
  Report Type: 
  Country: None (occurrence: None)
  Receive Date: 20060217
  Receipt Date: 20051104
  Transmission Date: 20060701
  Serious: Yes (Hospitalization)
  Sender: FDA-Public Use
  Company Number: US-MERCK-0511USA00767

PATIENT
  Age: 81 Year
  Sex: Male

DRUGS (7)
  1. VIOXX [Suspect]
     Route: 048
     Dates: start: 20020101
  2. THYROID TABLETS USP [Concomitant]
     Route: 065
  3. HYTRIN [Concomitant]
     Route: 065
  4. PAXIL [Concomitant]
     Route: 065
  5. ASPIRIN [Concomitant]
     Route: 065
  6. SINGULAIR [Concomitant]
     Route: 065
  7. CENTRUM [Concomitant]
     Route: 065

REACTIONS (3)
  - MYOCARDIAL INFARCTION [None]
  - PNEUMOTHORAX [None]
  - SKIN ULCER [None]
